FAERS Safety Report 23389779 (Version 1)
Quarter: 2024Q1

REPORT INFORMATION
  Report Type: Report from Study
  Country: US (occurrence: US)
  Receive Date: 20240111
  Receipt Date: 20240111
  Transmission Date: 20240410
  Serious: No
  Sender: FDA-Public Use
  Company Number: US-ALXN-A202310356

PATIENT
  Sex: Female

DRUGS (1)
  1. SOLIRIS [Suspect]
     Active Substance: ECULIZUMAB
     Indication: Myasthenia gravis
     Dosage: UNK
     Route: 065

REACTIONS (8)
  - Pain [Recovering/Resolving]
  - Night sweats [Unknown]
  - Fluid intake reduced [Unknown]
  - Muscular weakness [Unknown]
  - Asthenia [Unknown]
  - Dizziness [Unknown]
  - Headache [Recovering/Resolving]
  - Fatigue [Unknown]
